FAERS Safety Report 14844675 (Version 2)
Quarter: 2018Q2

REPORT INFORMATION
  Report Type: Spontaneous
  Country: FR (occurrence: FR)
  Receive Date: 20180504
  Receipt Date: 20180529
  Transmission Date: 20180711
  Serious: Yes (Other)
  Sender: FDA-Public Use
  Company Number: FR-TEVA-2018-FR-889440

PATIENT
  Age: 69 Year
  Sex: Female
  Weight: 97 kg

DRUGS (8)
  1. IRBESARTAN. [Concomitant]
     Active Substance: IRBESARTAN
     Indication: HYPERTENSION
     Route: 048
     Dates: start: 20170201, end: 20170718
  2. EUPHYTOSE [Concomitant]
     Active Substance: HERBALS
     Route: 048
     Dates: start: 20160101, end: 20170301
  3. KETOPROFENE [Suspect]
     Active Substance: KETOPROFEN
     Indication: PAIN
     Route: 048
     Dates: start: 19980101
  4. DOLIPRANE [Suspect]
     Active Substance: ACETAMINOPHEN
     Dosage: 2 GRAM DAILY;
  5. OMEPRAZOLE. [Suspect]
     Active Substance: OMEPRAZOLE
     Route: 048
     Dates: start: 20130101
  6. CACIT [Concomitant]
     Active Substance: CALCIUM\VITAMIN D
     Route: 065
  7. FEBUXOSTAT. [Suspect]
     Active Substance: FEBUXOSTAT
     Route: 065
     Dates: start: 20130101
  8. EUPHYTOSE [Suspect]
     Active Substance: HERBALS
     Dosage: 2 GRAM DAILY;
     Route: 065

REACTIONS (1)
  - Non-alcoholic steatohepatitis [Not Recovered/Not Resolved]

NARRATIVE: CASE EVENT DATE: 20170301
